FAERS Safety Report 13252425 (Version 1)
Quarter: 2017Q1

REPORT INFORMATION
  Report Type: Spontaneous
  Country: US (occurrence: US)
  Receive Date: 20170220
  Receipt Date: 20170220
  Transmission Date: 20170428
  Serious: Yes (Other)
  Sender: FDA-Public Use
  Company Number: US-BAYER-2017-026178

PATIENT
  Age: 74 Year
  Sex: Male
  Weight: 86 kg

DRUGS (2)
  1. ALKA-SELTZER PLUS COLD AND COUGH FORMULA [Suspect]
     Active Substance: ACETAMINOPHEN\CHLORPHENIRAMINE\DEXTROMETHORPHAN\PHENYLEPHRINE
     Indication: NASOPHARYNGITIS
  2. ALKA-SELTZER PLUS COLD AND COUGH FORMULA [Suspect]
     Active Substance: ACETAMINOPHEN\CHLORPHENIRAMINE\DEXTROMETHORPHAN\PHENYLEPHRINE
     Indication: ALLERGIC RESPIRATORY SYMPTOM
     Dosage: 2 DF, UNK
     Route: 048
     Dates: start: 20170206, end: 20170207

REACTIONS (1)
  - Blood pressure increased [Unknown]
